FAERS Safety Report 6984069-6 (Version None)
Quarter: 2010Q3

REPORT INFORMATION
  Report Type: 
  Country: None (occurrence: None)
  Receive Date: 20100915
  Receipt Date: 20090514
  Transmission Date: 20110219
  Serious: No
  Sender: FDA-Public Use
  Company Number: US-WYE-H09357109

PATIENT
  Age: 66 Year
  Sex: Female
  Weight: 86.26 kg

DRUGS (6)
  1. PRISTIQ [Suspect]
     Indication: DEPRESSION
     Route: 048
     Dates: start: 20090512, end: 20090512
  2. PRISTIQ [Suspect]
     Dosage: TOOK HALF A TABLET
     Route: 048
     Dates: start: 20090514, end: 20090514
  3. ACETYLSALICYLIC ACID [Concomitant]
  4. VITAMIN TAB [Concomitant]
  5. HYDROCHLOROTHIAZIDE [Concomitant]
  6. ATENOLOL [Concomitant]

REACTIONS (2)
  - DYSPEPSIA [None]
  - NAUSEA [None]
